FAERS Safety Report 15342799 (Version 1)
Quarter: 2018Q3

REPORT INFORMATION
  Report Type: Spontaneous
  Country: DE (occurrence: DE)
  Receive Date: 20180903
  Receipt Date: 20180903
  Transmission Date: 20181010
  Serious: Yes (Other)
  Sender: FDA-Public Use
  Company Number: DE-009507513-1808DEU011984

PATIENT
  Age: 74 Year
  Sex: Male
  Weight: 90.5 kg

DRUGS (1)
  1. EZETROL [Suspect]
     Active Substance: EZETIMIBE
     Indication: HYPERCHOLESTEROLAEMIA
     Dosage: 10 MG, UNK
     Route: 048
     Dates: start: 20180613, end: 20180613

REACTIONS (4)
  - Limb discomfort [Recovered/Resolved]
  - Altered state of consciousness [Recovered/Resolved]
  - Mental disorder [Recovered/Resolved]
  - Pain in extremity [Recovered/Resolved]

NARRATIVE: CASE EVENT DATE: 20180613
